FAERS Safety Report 9347980 (Version 4)
Quarter: 2014Q2

REPORT INFORMATION
  Report Type: Spontaneous
  Country: US (occurrence: US)
  Receive Date: 20130614
  Receipt Date: 20140627
  Transmission Date: 20141212
  Serious: Yes (Other)
  Sender: FDA-Public Use
  Company Number: US-BAYER-2013-070539

PATIENT
  Age: 26 Year
  Sex: Female
  Weight: 61.68 kg

DRUGS (5)
  1. MIRENA [Suspect]
     Dosage: 20 MCG/24HR, CONT
     Route: 015
     Dates: start: 2010, end: 201106
  2. MIRENA [Suspect]
  3. MACROBID [Concomitant]
     Indication: URINARY TRACT INFECTION
     Dosage: UNK
     Dates: start: 201006
  4. SYNTHROID [Concomitant]
     Dosage: 50 MCG DAILY
  5. MISOPROSTOL [Concomitant]

REACTIONS (5)
  - Uterine perforation [None]
  - Injury [None]
  - Pain [None]
  - Emotional distress [None]
  - Device issue [None]
